FAERS Safety Report 9149447 (Version 2)
Quarter: 2013Q2

REPORT INFORMATION
  Report Type: Spontaneous
  Country: US (occurrence: US)
  Receive Date: 20130308
  Receipt Date: 20130424
  Transmission Date: 20140414
  Serious: Yes (Hospitalization)
  Sender: FDA-Public Use
  Company Number: US-JNJFOC-20130300272

PATIENT
  Age: 79 Year
  Sex: Female
  Weight: 86.7 kg

DRUGS (4)
  1. XARELTO [Suspect]
     Indication: THROMBOSIS PROPHYLAXIS
     Dosage: NDC 50458-580-10
     Route: 048
     Dates: start: 20130219, end: 20130221
  2. XARELTO [Suspect]
     Indication: HIP ARTHROPLASTY
     Dosage: NDC 50458-580-10
     Route: 048
     Dates: start: 20130219, end: 20130221
  3. CELEBREX [Concomitant]
     Indication: INFLAMMATION
     Route: 065
     Dates: start: 20130219, end: 20130227
  4. LYRICA [Concomitant]
     Indication: PAIN
     Route: 065
     Dates: start: 20130219, end: 20130227

REACTIONS (3)
  - Pulmonary embolism [Unknown]
  - Encephalopathy [Unknown]
  - Acute respiratory failure [Unknown]
